FAERS Safety Report 4301496-6 (Version None)
Quarter: 2004Q1

REPORT INFORMATION
  Report Type: 
  Country: None (occurrence: None)
  Receive Date: 20040219
  Receipt Date: 20040213
  Transmission Date: 20041129
  Serious: Yes (Hospitalization, Other)
  Sender: FDA-Public Use
  Company Number: 2004-00629

PATIENT
  Age: 24 Year
  Sex: Female
  Weight: 108.8 kg

DRUGS (1)
  1. FERRLECIT [Suspect]
     Indication: IRON DEFICIENCY ANAEMIA
     Dosage: 250MG IN NS 250ML OVER 1 HOUR, INTRAVENOUS
     Route: 042
     Dates: start: 20040213, end: 20040213

REACTIONS (3)
  - ANAPHYLACTIC REACTION [None]
  - COMPLICATIONS OF MATERNAL EXPOSURE TO THERAPEUTIC DRUGS [None]
  - PREMATURE RUPTURE OF MEMBRANES [None]
